FAERS Safety Report 4890788-8 (Version None)
Quarter: 2006Q1

REPORT INFORMATION
  Report Type: 
  Country: None (occurrence: None)
  Receive Date: 20060123
  Receipt Date: 20060116
  Transmission Date: 20060701
  Serious: Yes (Other)
  Sender: FDA-Public Use
  Company Number: S06-USA-00204-01

PATIENT
  Age: 75 Year
  Sex: Male

DRUGS (5)
  1. NAMENDA [Suspect]
     Indication: COGNITIVE DISORDER
     Dosage: 5 MG QD PO
     Route: 048
     Dates: start: 20050501, end: 20050101
  2. NAMENDA [Suspect]
     Indication: COGNITIVE DISORDER
     Dosage: 5 MG BID PO
     Route: 048
     Dates: start: 20050101, end: 20050101
  3. NAMENDA [Suspect]
     Indication: COGNITIVE DISORDER
     Dosage: 15 MG QD PO
     Route: 048
     Dates: start: 20050101, end: 20050101
  4. NAMENDA [Suspect]
     Indication: COGNITIVE DISORDER
     Dosage: 10 MG BID PO
     Route: 048
     Dates: start: 20050101, end: 20050901
  5. ARICEPT [Concomitant]

REACTIONS (3)
  - AMYOTROPHIC LATERAL SCLEROSIS [None]
  - COGNITIVE DISORDER [None]
  - CONDITION AGGRAVATED [None]
